FAERS Safety Report 7311871-3 (Version None)
Quarter: 2011Q1

REPORT INFORMATION
  Report Type: 
  Country: None (occurrence: None)
  Receive Date: 20110224
  Receipt Date: 20110114
  Transmission Date: 20110831
  Serious: Yes (Other)
  Sender: FDA-Public Use
  Company Number: US-BAXTER-2009BH018730

PATIENT
  Age: 48 Year
  Sex: Female

DRUGS (15)
  1. TEGRETOL [Concomitant]
     Indication: PRODUCT USED FOR UNKNOWN INDICATION
     Route: 065
  2. MACRODANTIN [Concomitant]
     Indication: PRODUCT USED FOR UNKNOWN INDICATION
     Route: 048
  3. ACETAMINOPHEN [Concomitant]
     Indication: PRODUCT USED FOR UNKNOWN INDICATION
     Route: 048
  4. PROPOFOL [Concomitant]
     Indication: PRODUCT USED FOR UNKNOWN INDICATION
     Route: 042
     Dates: start: 20080215
  5. LIDOCAINE HYDROCHLORIDE [Concomitant]
     Indication: PRODUCT USED FOR UNKNOWN INDICATION
     Route: 065
     Dates: start: 20080215
  6. FEMARA [Concomitant]
     Indication: PRODUCT USED FOR UNKNOWN INDICATION
     Route: 065
  7. BUPIVACAINE HCL [Concomitant]
     Indication: PRODUCT USED FOR UNKNOWN INDICATION
     Dates: start: 20080215
  8. HYDROCODONE BITARTRATE [Concomitant]
     Indication: PRODUCT USED FOR UNKNOWN INDICATION
     Route: 065
     Dates: start: 20080215
  9. NORMAL SALINE [Concomitant]
     Indication: PRODUCT USED FOR UNKNOWN INDICATION
     Route: 042
  10. HEPARIN SODIUM INJECTION [Suspect]
     Indication: CATHETERISATION VENOUS
     Route: 042
     Dates: start: 20080215
  11. MIDAZOLAM HCL [Concomitant]
     Indication: PRODUCT USED FOR UNKNOWN INDICATION
     Route: 065
     Dates: start: 20080215
  12. FENTANYL [Concomitant]
     Indication: PRODUCT USED FOR UNKNOWN INDICATION
     Route: 065
     Dates: start: 20080215
  13. HEPARIN SODIUM 1,000 UNITS AND SODIUM CHLORIDE 0.9% [Suspect]
     Indication: PRODUCT USED FOR UNKNOWN INDICATION
     Route: 042
     Dates: start: 20080215, end: 20080215
  14. MEDROL [Concomitant]
     Indication: PRODUCT USED FOR UNKNOWN INDICATION
     Route: 048
  15. TOPAMAX [Concomitant]
     Indication: PRODUCT USED FOR UNKNOWN INDICATION
     Route: 065

REACTIONS (22)
  - HAEMORRHAGIC DISORDER [None]
  - ATELECTASIS [None]
  - BONE LESION [None]
  - RASH [None]
  - ABDOMINAL PAIN [None]
  - BACK PAIN [None]
  - MENTAL STATUS CHANGES [None]
  - BURNING SENSATION [None]
  - ANAEMIA [None]
  - NAUSEA [None]
  - CHEST PAIN [None]
  - AURA [None]
  - DEHYDRATION [None]
  - THROAT TIGHTNESS [None]
  - HYPERHIDROSIS [None]
  - LYMPHOEDEMA [None]
  - ASTHENIA [None]
  - PHARYNGEAL OEDEMA [None]
  - DIARRHOEA [None]
  - HAEMORRHAGE [None]
  - URINARY TRACT INFECTION [None]
  - SUPRAPUBIC PAIN [None]
